FAERS Safety Report 25981392 (Version 3)
Quarter: 2025Q4

REPORT INFORMATION
  Report Type: Spontaneous
  Country: JP (occurrence: JP)
  Receive Date: 20251030
  Receipt Date: 20251209
  Transmission Date: 20260118
  Serious: No
  Sender: ABBVIE
  Company Number: JP-GSKNCCC-Case-02688233_AE-104603

PATIENT
  Age: 73 Year
  Sex: Male

DRUGS (1)
  1. BOTOX [Suspect]
     Active Substance: ONABOTULINUMTOXINA
     Indication: Muscle spasms
     Dosage: 500 IU
     Route: 065
     Dates: start: 20251016

REACTIONS (3)
  - Haematoma muscle [Unknown]
  - Oedema [Unknown]
  - Feeling hot [Unknown]

NARRATIVE: CASE EVENT DATE: 20251018
